FAERS Safety Report 12560522 (Version 1)
Quarter: 2016Q3

REPORT INFORMATION
  Report Type: Spontaneous
  Country: US (occurrence: None)
  Receive Date: 20160714
  Receipt Date: 20160714
  Transmission Date: 20161109
  Serious: No
  Sender: FDA-Public Use
  Company Number: None

PATIENT
  Age: 34 Year
  Sex: Female
  Weight: 77.11 kg

DRUGS (3)
  1. PEROXETINE HCL [Concomitant]
  2. BUPRENORPHINE. [Concomitant]
     Active Substance: BUPRENORPHINE
  3. SUBOXONE [Suspect]
     Active Substance: BUPRENORPHINE HYDROCHLORIDE\NALOXONE HYDROCHLORIDE
     Indication: DRUG THERAPY
     Dosage: 8 MG/FILM 2 FILMS QD SUBLINGUALLY?
     Route: 060
     Dates: start: 20160208, end: 20160418

REACTIONS (3)
  - Ulcer [None]
  - Oedema mucosal [None]
  - Erythema [None]

NARRATIVE: CASE EVENT DATE: 20160418
